FAERS Safety Report 12919894 (Version 1)
Quarter: 2016Q4

REPORT INFORMATION
  Report Type: Spontaneous
  Country: US (occurrence: US)
  Receive Date: 20161108
  Receipt Date: 20161108
  Transmission Date: 20170207
  Serious: No
  Sender: FDA-Public Use
  Company Number: US-TEVA-702349ACC

PATIENT
  Age: 37 Year
  Sex: Female
  Weight: 55.39 kg

DRUGS (4)
  1. VITAMIN D3 [Concomitant]
     Active Substance: CHOLECALCIFEROL
     Indication: SUPPLEMENTATION THERAPY
  2. PARAGARD T 380A [Suspect]
     Active Substance: COPPER
     Indication: CONTRACEPTION
     Dates: start: 20160915
  3. MULTIVITAMIN [Concomitant]
     Active Substance: VITAMINS
     Indication: SUPPLEMENTATION THERAPY
  4. SERTRALINE [Concomitant]
     Active Substance: SERTRALINE HYDROCHLORIDE
     Indication: ANXIETY

REACTIONS (5)
  - Swelling [Recovered/Resolved]
  - Rash pruritic [Not Recovered/Not Resolved]
  - Procedural pain [Recovered/Resolved]
  - Menorrhagia [Recovered/Resolved]
  - Post procedural discomfort [Recovered/Resolved]

NARRATIVE: CASE EVENT DATE: 20160915
